FAERS Safety Report 5849921-3 (Version None)
Quarter: 2008Q3

REPORT INFORMATION
  Report Type: 
  Country: None (occurrence: None)
  Receive Date: 20080819
  Receipt Date: 20080814
  Transmission Date: 20090109
  Serious: Yes (Hospitalization)
  Sender: FDA-Public Use
  Company Number: US-PURDUE-USA_2008_0034477

PATIENT
  Age: 59 Year
  Sex: Female

DRUGS (9)
  1. SENOKOT [Suspect]
     Indication: CONSTIPATION
     Dosage: 2 TABLET, SINGLE
     Route: 048
     Dates: start: 20080605, end: 20080605
  2. ALPRAZOLAM [Concomitant]
  3. AMBIEN [Concomitant]
  4. COMPAZINE [Concomitant]
  5. IBUPROFEN [Concomitant]
  6. ZOFRAN [Concomitant]
  7. LEXAPRO [Concomitant]
  8. ADVAIR DISKUS 100/50 [Concomitant]
  9. PF-02341066 [Suspect]
     Indication: OVARIAN CANCER
     Dosage: 250 MG, BID
     Route: 048
     Dates: start: 20080529, end: 20080605

REACTIONS (3)
  - DIARRHOEA [None]
  - NAUSEA [None]
  - VOMITING [None]
